FAERS Safety Report 12928340 (Version 1)
Quarter: 2016Q4

REPORT INFORMATION
  Report Type: Report from Study
  Country: US (occurrence: US)
  Receive Date: 20161110
  Receipt Date: 20161110
  Transmission Date: 20170207
  Serious: Yes (Other)
  Sender: FDA-Public Use
  Company Number: US-BRISTOL-MYERS SQUIBB COMPANY-BMS-2016-089621

PATIENT
  Age: 73 Year
  Sex: Female
  Weight: 90.7 kg

DRUGS (1)
  1. NIVOLUMAB [Suspect]
     Active Substance: NIVOLUMAB
     Indication: MALIGNANT MELANOMA
     Dosage: UNK, Q2WK
     Route: 042
     Dates: start: 201505

REACTIONS (21)
  - Faecal volume decreased [Unknown]
  - Gastrointestinal disorder [Unknown]
  - Joint swelling [Unknown]
  - Transient ischaemic attack [Unknown]
  - Feeling hot [Unknown]
  - Visual impairment [Unknown]
  - Diarrhoea [Unknown]
  - Oropharyngeal pain [Unknown]
  - Syncope [Unknown]
  - Dehydration [Unknown]
  - Anaemia [Unknown]
  - Vomiting [Unknown]
  - Rash [Unknown]
  - Pruritus [Recovering/Resolving]
  - Fatigue [Unknown]
  - Pigmentation disorder [Unknown]
  - Cough [Recovering/Resolving]
  - Pain [Unknown]
  - Spleen disorder [Unknown]
  - Arthralgia [Recovered/Resolved]
  - Herpes zoster [Unknown]

NARRATIVE: CASE EVENT DATE: 20160508
